FAERS Safety Report 6555703-X (Version None)
Quarter: 2010Q1

REPORT INFORMATION
  Report Type: 
  Country: None (occurrence: None)
  Receive Date: 20100128
  Receipt Date: 20100122
  Transmission Date: 20100710
  Serious: Yes (Hospitalization)
  Sender: FDA-Public Use
  Company Number: US-BRISTOL-MYERS SQUIBB COMPANY-14485916

PATIENT
  Age: 67 Year
  Sex: Female

DRUGS (10)
  1. ABATACEPT [Suspect]
     Indication: RHEUMATOID ARTHRITIS
     Dosage: ROUTE OF ADMINISTRATION: IV (MONTHLY): 750MG SC (WEEKLY): 125MG
     Route: 042
     Dates: start: 20081117
  2. PLACEBO [Suspect]
     Indication: RHEUMATOID ARTHRITIS
     Route: 058
     Dates: start: 20081117
  3. PLAVIX [Concomitant]
     Dates: start: 20060101
  4. ASPIRIN [Concomitant]
     Dates: start: 20060101
  5. ENALAPRIL MALEATE [Concomitant]
     Dates: start: 20070501
  6. METOPROLOL [Concomitant]
     Route: 048
  7. NITROGLYCERIN [Concomitant]
     Dosage: 0.4MG SL OF 5 MIN
     Route: 061
  8. FISH OIL [Concomitant]
     Dosage: 1 DF= 1 CAPS
     Route: 048
  9. LORAZEPAM [Concomitant]
     Route: 048
  10. ACETAMINOPHEN [Concomitant]
     Route: 048

REACTIONS (4)
  - CHEST PAIN [None]
  - DEHYDRATION [None]
  - SINUS TACHYCARDIA [None]
  - VOMITING [None]
